FAERS Safety Report 10480330 (Version 3)
Quarter: 2014Q3

REPORT INFORMATION
  Report Type: Report from Study
  Country: NZ (occurrence: NZ)
  Receive Date: 20140929
  Receipt Date: 20140929
  Transmission Date: 20150326
  Serious: Yes (Hospitalization, Other)
  Sender: FDA-Public Use
  Company Number: NZ-MERCK-1405NZL002002

PATIENT
  Age: 74 Year
  Sex: Male
  Weight: 139.5 kg

DRUGS (13)
  1. VENTOLIN [Concomitant]
     Active Substance: ALBUTEROL SULFATE
     Indication: ASTHMA
     Dosage: 200 MICROGRAMS, PRN
     Route: 048
     Dates: start: 201201
  2. PEMBROLIZUMAB. [Suspect]
     Active Substance: PEMBROLIZUMAB
     Dosage: 10 MG/KG, QOW, DOSE 250 (DOSE NOT PROVIDED)
     Route: 042
     Dates: start: 20140505, end: 20140505
  3. PRADAXA [Concomitant]
     Active Substance: DABIGATRAN ETEXILATE MESYLATE
     Indication: ATRIAL FIBRILLATION
     Dosage: 75 MG, BID
     Route: 048
     Dates: start: 201101
  4. ARNICA [Concomitant]
     Indication: SKIN LESION
     Dosage: 1 DF, QD
     Route: 061
     Dates: start: 20131001
  5. LEVOTHYROXINE SODIUM. [Concomitant]
     Active Substance: LEVOTHYROXINE SODIUM
     Dosage: 0.1, QOD
     Route: 048
     Dates: start: 20140304, end: 20140427
  6. BETA (BETAMETHASONE VALERATE) [Concomitant]
     Indication: RASH
     Dosage: 0.5 APPLICATION, BID
     Route: 061
     Dates: start: 20140127
  7. METOPROLOL [Concomitant]
     Active Substance: METOPROLOL
     Indication: HYPERTENSION
     Dosage: 95 MG, QD
     Route: 048
     Dates: start: 201101
  8. LEVOTHYROXINE SODIUM. [Concomitant]
     Active Substance: LEVOTHYROXINE SODIUM
     Indication: HYPOTHYROIDISM
     Dosage: 0.1 MG, QD
     Route: 048
     Dates: start: 20131226, end: 20140427
  9. FLIXOTIDE [Concomitant]
     Active Substance: FLUTICASONE PROPIONATE
     Indication: ASTHMA
     Dosage: 250 MICROGRAM, QD
     Route: 048
     Dates: start: 201201
  10. PEMBROLIZUMAB. [Suspect]
     Active Substance: PEMBROLIZUMAB
     Indication: MALIGNANT MELANOMA
     Dosage: 10 MG/KG, QOW, DOSE 250 (DOSE NOT PROVIDED)
     Route: 042
     Dates: start: 20131014, end: 20140331
  11. INHIBACE PLUS [Concomitant]
     Indication: HYPERTENSION
     Dosage: 12.5 MG, QD
     Route: 048
     Dates: start: 201101
  12. VITAMIN E [Concomitant]
     Active Substance: .ALPHA.-TOCOPHEROL
     Indication: RASH
     Dosage: 0.5 DF, BID
     Route: 061
     Dates: start: 20140210
  13. PEMBROLIZUMAB. [Suspect]
     Active Substance: PEMBROLIZUMAB
     Dosage: 10 MG/KG, QOW, DOSE 250 (DOSE NOT PROVIDED)
     Route: 042
     Dates: start: 20140414, end: 20140414

REACTIONS (3)
  - Gout [Recovering/Resolving]
  - Cholecystitis [Not Recovered/Not Resolved]
  - Sepsis [Not Recovered/Not Resolved]

NARRATIVE: CASE EVENT DATE: 20140415
